FAERS Safety Report 7618078-0 (Version None)
Quarter: 2011Q3

REPORT INFORMATION
  Report Type: 
  Country: None (occurrence: None)
  Receive Date: 20110718
  Receipt Date: 20110708
  Transmission Date: 20111222
  Serious: Yes (Other)
  Sender: FDA-Public Use
  Company Number: DE-SANOFI-AVENTIS-2011SA043787

PATIENT
  Sex: Female

DRUGS (1)
  1. PLAVIX [Suspect]
     Route: 048

REACTIONS (4)
  - PLATELET FUNCTION TEST ABNORMAL [None]
  - DRUG INEFFECTIVE [None]
  - CEREBRAL ISCHAEMIA [None]
  - TRANSIENT ISCHAEMIC ATTACK [None]
